FAERS Safety Report 9249947 (Version 7)
Quarter: 2014Q1

REPORT INFORMATION
  Report Type: Report from Study
  Country: BR (occurrence: BR)
  Receive Date: 20130424
  Receipt Date: 20140203
  Transmission Date: 20141002
  Serious: Yes (Other)
  Sender: FDA-Public Use
  Company Number: BR-ROCHE-1217814

PATIENT
  Sex: Male
  Weight: 103 kg

DRUGS (6)
  1. PEGASYS [Suspect]
     Indication: HEPATITIS C
     Route: 065
     Dates: start: 2013
  2. PEGASYS [Suspect]
     Route: 065
     Dates: start: 20130802
  3. RIBAVIRIN [Suspect]
     Indication: HEPATITIS C
     Route: 065
     Dates: start: 2013
  4. TELAPREVIR [Suspect]
     Indication: HEPATITIS C
     Dosage: PALNNED FOR 3 MONTHS
     Route: 065
     Dates: start: 2013
  5. HIGROTON [Concomitant]
     Indication: BLOOD PRESSURE
     Route: 065
  6. LOSARTAN [Concomitant]
     Indication: BLOOD PRESSURE
     Dosage: 25 MG DAILY
     Route: 065

REACTIONS (15)
  - Viral load increased [Recovering/Resolving]
  - Weight decreased [Unknown]
  - Depression [Unknown]
  - Labyrinthitis [Unknown]
  - Feeling of despair [Not Recovered/Not Resolved]
  - Somnolence [Unknown]
  - Decreased appetite [Unknown]
  - Pruritus [Unknown]
  - Hypertension [Not Recovered/Not Resolved]
  - Dizziness [Unknown]
  - Anxiety [Unknown]
  - Gait disturbance [Unknown]
  - Muscular weakness [Unknown]
  - Tremor [Not Recovered/Not Resolved]
  - Dyspnoea [Unknown]
